FAERS Safety Report 6048631-X (Version None)
Quarter: 2009Q1

REPORT INFORMATION
  Report Type: 
  Country: None (occurrence: None)
  Receive Date: 20090121
  Receipt Date: 20090121
  Transmission Date: 20090719
  Serious: Yes (Hospitalization)
  Sender: FDA-Public Use
  Company Number: None

PATIENT
  Age: 45 Year
  Sex: Male
  Weight: 135.6255 kg

DRUGS (2)
  1. LASIX [Suspect]
     Indication: HYPERTENSION
     Dosage: 80 MG BID PO
     Route: 048
  2. ZAROXOLYN [Suspect]
     Indication: HYPERTENSION
     Dosage: 5 MG DAILY PO
     Route: 048

REACTIONS (4)
  - ARTHRALGIA [None]
  - DEHYDRATION [None]
  - GOUT [None]
  - JOINT SWELLING [None]
